FAERS Safety Report 6437474-0 (Version None)
Quarter: 2009Q4

REPORT INFORMATION
  Report Type: 
  Country: None (occurrence: None)
  Receive Date: 20091112
  Receipt Date: 20091110
  Transmission Date: 20100525
  Serious: Yes (Life-Threatening)
  Sender: FDA-Public Use
  Company Number: PHHY2009GB11499

PATIENT
  Age: 50 Year
  Sex: Male

DRUGS (1)
  1. DICLOFENAC [Suspect]
     Indication: MUSCLE INJURY

REACTIONS (19)
  - BLISTER [None]
  - BLOOD THROMBIN [None]
  - DISSEMINATED INTRAVASCULAR COAGULATION [None]
  - FIBRIN D DIMER INCREASED [None]
  - GASTRECTOMY [None]
  - GASTRIC BYPASS [None]
  - GASTRIC ULCER [None]
  - GASTROINTESTINAL NECROSIS [None]
  - HAEMATEMESIS [None]
  - JEJUNECTOMY [None]
  - LAPAROTOMY [None]
  - NECROSIS ISCHAEMIC [None]
  - PERITONITIS [None]
  - POST PROCEDURAL BILE LEAK [None]
  - POST PROCEDURAL COMPLICATION [None]
  - POST PROCEDURAL HAEMORRHAGE [None]
  - SEPSIS [None]
  - THERAPEUTIC EMBOLISATION [None]
  - TRANSFUSION [None]
